FAERS Safety Report 14997338 (Version 1)
Quarter: 2018Q3

REPORT INFORMATION
  Report Type: Spontaneous
  Country: FR (occurrence: FR)
  Receive Date: 20180611
  Receipt Date: 20180611
  Transmission Date: 20181010
  Serious: Yes (Death)
  Sender: FDA-Public Use
  Company Number: FR-B. BRAUN MEDICAL INC.-2049249

PATIENT
  Age: 55 Year
  Sex: Male
  Weight: 75 kg

DRUGS (17)
  1. NORADRENALINE MYLAN [Suspect]
     Active Substance: NOREPINEPHRINE\NOREPINEPHRINE BITARTRATE
     Route: 042
  2. ETOMIDATE LIPURO [Suspect]
     Active Substance: ETOMIDATE
     Route: 042
  3. PROPOFOL PANPHARMA [Suspect]
     Active Substance: PROPOFOL
     Route: 042
  4. CISATRACURIUM MYLAN [Suspect]
     Active Substance: CISATRACURIUM
     Route: 042
  5. CLOXACILLINE PANPHARMA [Suspect]
     Active Substance: CLOXACILLIN
     Route: 042
  6. CUSTODIOL ATU (CALCIUM CHLORIDE\HISTIDINE\MAGNESIUM\MANNITOL\POTASSIUM\SODIUM CHLORIDE\TRYPTOPHAN) [Suspect]
     Active Substance: CALCIUM CL\HISTIDINE\MAGNESIUM\MANNITOL\POTASSIUM\SODIUM CL\TRYPTOPHAN
     Route: 013
  7. RINGERS SOLUTION [Suspect]
     Active Substance: CALCIUM CHLORIDE\POTASSIUM CHLORIDE\SODIUM CHLORIDE
     Route: 042
  8. SUFENTANIL MYLAN [Suspect]
     Active Substance: SUFENTANIL
     Route: 042
  9. DOBUTAMINE PANPHARMA [Suspect]
     Active Substance: DOBUTAMINE\DOBUTAMINE HYDROCHLORIDE
     Route: 042
  10. PROTAMINE CHOAY [Suspect]
     Active Substance: PROTAMINE
     Route: 042
  11. SODIUM CHLORIDE. [Suspect]
     Active Substance: SODIUM CHLORIDE
     Route: 042
  12. KETAMINE RENAUDIN [Suspect]
     Active Substance: KETAMINE
     Route: 042
  13. HEPARINE CHOAY [Suspect]
     Active Substance: HEPARIN SODIUM
     Route: 042
  14. LACTATED RINGERS SOLUTION [Suspect]
     Active Substance: CALCIUM CHLORIDE\POTASSIUM CHLORIDE\SODIUM CHLORIDE\SODIUM LACTATE
     Route: 042
  15. RINGERS SOLUTION [Suspect]
     Active Substance: CALCIUM CHLORIDE\POTASSIUM CHLORIDE\SODIUM CHLORIDE
     Route: 042
  16. EPHEDRINE RENAUDIN [Suspect]
     Active Substance: EPHEDRINE HYDROCHLORIDE
     Route: 042
  17. MIDAZOLAM [Suspect]
     Active Substance: MIDAZOLAM HYDROCHLORIDE
     Route: 042

REACTIONS (3)
  - Left ventricular failure [Fatal]
  - Multiple organ dysfunction syndrome [None]
  - Cardiogenic shock [Fatal]

NARRATIVE: CASE EVENT DATE: 20170714
